FAERS Safety Report 9752000 (Version 3)
Quarter: 2014Q1

REPORT INFORMATION
  Report Type: Spontaneous
  Country: US (occurrence: US)
  Receive Date: 20131213
  Receipt Date: 20140123
  Transmission Date: 20141002
  Serious: Yes (Hospitalization, Other)
  Sender: FDA-Public Use
  Company Number: US-ROCHE-1313812

PATIENT
  Age: 49 Year
  Sex: Female

DRUGS (2)
  1. KLONOPIN [Suspect]
     Indication: MULTIPLE SCLEROSIS
     Route: 065
     Dates: start: 20011226
  2. COPAXONE [Suspect]
     Indication: MULTIPLE SCLEROSIS
     Route: 065
     Dates: start: 20011226

REACTIONS (7)
  - Dysarthria [Recovering/Resolving]
  - Gait disturbance [Recovering/Resolving]
  - Delirium [Unknown]
  - Disturbance in attention [Unknown]
  - Urinary tract infection [Unknown]
  - Multiple sclerosis relapse [Unknown]
  - Extra dose administered [Unknown]
